FAERS Safety Report 5714781-8 (Version None)
Quarter: 2008Q2

REPORT INFORMATION
  Report Type: 
  Country: None (occurrence: None)
  Receive Date: 20080423
  Receipt Date: 20070212
  Transmission Date: 20081010
  Serious: Yes (Death)
  Sender: FDA-Public Use
  Company Number: DE-ROCHE-482552

PATIENT
  Sex: Female

DRUGS (3)
  1. CAPECITABINE [Suspect]
     Indication: COLORECTAL CANCER
     Dosage: DOSAGE REGIMEN WAS REPORTED AS 2 G/D.
     Route: 065
     Dates: start: 20060911, end: 20061220
  2. ZOMETA [Concomitant]
  3. ARANESP [Concomitant]
     Route: 058

REACTIONS (1)
  - DEATH [None]
